FAERS Safety Report 7659842-1 (Version None)
Quarter: 2011Q3

REPORT INFORMATION
  Report Type: 
  Country: None (occurrence: None)
  Receive Date: 20110805
  Receipt Date: 20110726
  Transmission Date: 20111222
  Serious: Yes (Other)
  Sender: FDA-Public Use
  Company Number: CA-JNJFOC-20110800330

PATIENT
  Sex: Female
  Weight: 73.4 kg

DRUGS (17)
  1. HORMONE REPLACEMENT [Concomitant]
     Route: 065
  2. LECITHIN [Concomitant]
     Route: 065
  3. QUESTRAN [Concomitant]
     Route: 065
  4. SYNTHROID [Concomitant]
     Route: 065
  5. SALMON OIL [Concomitant]
     Route: 065
  6. REMICADE [Suspect]
     Indication: CROHN'S DISEASE
     Route: 042
     Dates: start: 20101106
  7. IMURAN [Concomitant]
     Route: 065
  8. IMODIUM [Concomitant]
     Route: 065
  9. VITAMIN B-12 [Concomitant]
     Route: 065
  10. LUTEIN [Concomitant]
     Route: 065
  11. ASPIRIN [Concomitant]
     Route: 065
  12. METOCLOPRAMIDE [Concomitant]
     Route: 065
  13. SOLU-CORTEF [Concomitant]
     Indication: PREMEDICATION
     Route: 042
  14. DEMEROL [Concomitant]
  15. REMICADE [Suspect]
     Route: 042
     Dates: start: 20110531
  16. AMITRIPTYLINE HCL [Concomitant]
     Route: 065
  17. GRAVOL TAB [Concomitant]

REACTIONS (6)
  - PAIN IN EXTREMITY [None]
  - SPINAL COLUMN STENOSIS [None]
  - INTERVERTEBRAL DISC PROTRUSION [None]
  - LIGAMENT DISORDER [None]
  - NAUSEA [None]
  - VOMITING [None]
